FAERS Safety Report 4673864-4 (Version None)
Quarter: 2005Q2

REPORT INFORMATION
  Report Type: 
  Country: None (occurrence: None)
  Receive Date: 20050524
  Receipt Date: 20050510
  Transmission Date: 20051028
  Serious: Yes (Other)
  Sender: FDA-Public Use
  Company Number: GBS050517375

PATIENT
  Age: 64 Year
  Sex: Male

DRUGS (2)
  1. XIGRIS [Suspect]
     Dosage: UNK
     Route: 065
     Dates: start: 20050501
  2. HEPARIN [Concomitant]

REACTIONS (1)
  - THROMBOCYTOPENIA [None]
